FAERS Safety Report 18648417 (Version 1)
Quarter: 2020Q4

REPORT INFORMATION
  Report Type: Other
  Country: CU (occurrence: CU)
  Receive Date: 20201222
  Receipt Date: 20201222
  Transmission Date: 20210114
  Serious: Yes (Other)
  Sender: FDA-Public Use
  Company Number: CU-ROCHE-2731288

PATIENT

DRUGS (1)
  1. BEVACIZUMAB. [Suspect]
     Active Substance: BEVACIZUMAB
     Indication: NEOVASCULAR AGE-RELATED MACULAR DEGENERATION
     Dosage: MONTHLY
     Route: 050

REACTIONS (5)
  - Uveitis [Unknown]
  - Ocular hypertension [Unknown]
  - Cataract [Unknown]
  - Off label use [Unknown]
  - Product use in unapproved indication [Unknown]
